FAERS Safety Report 24050456 (Version 1)
Quarter: 2024Q3

REPORT INFORMATION
  Report Type: Spontaneous
  Country: CH (occurrence: CH)
  Receive Date: 20240704
  Receipt Date: 20240704
  Transmission Date: 20241017
  Serious: Yes (Death)
  Sender: NORDIC PHARMA
  Company Number: CH-NORDICGR-056642

PATIENT

DRUGS (2)
  1. METHOTREXATE [Suspect]
     Active Substance: METHOTREXATE
     Indication: Product used for unknown indication
     Dosage: METHOTREXATE DOSE HAD BEEN DOUBLED
     Dates: end: 2022
  2. non-steroidal anti-inflammatory drugs [Concomitant]
     Indication: Product used for unknown indication

REACTIONS (6)
  - Incorrect dose administered [Fatal]
  - Accidental overdose [Fatal]
  - Mucosal disorder [Unknown]
  - Leukopenia [Fatal]
  - Renal impairment [Fatal]
  - Pyrexia [Unknown]

NARRATIVE: CASE EVENT DATE: 20220101
